FAERS Safety Report 5913678-8 (Version None)
Quarter: 2008Q4

REPORT INFORMATION
  Report Type: 
  Country: None (occurrence: None)
  Receive Date: 20081009
  Receipt Date: 20080929
  Transmission Date: 20090506
  Serious: Yes (Other)
  Sender: FDA-Public Use
  Company Number: US-JNJFOC-20080504056

PATIENT
  Sex: Female

DRUGS (1)
  1. INFLIXIMAB [Suspect]
     Indication: CROHN'S DISEASE
     Dosage: 2ND INFUSION
     Route: 042

REACTIONS (5)
  - BACK PAIN [None]
  - CATARACT [None]
  - GLAUCOMA [None]
  - HYPERSENSITIVITY [None]
  - INFUSION RELATED REACTION [None]
